FAERS Safety Report 8028830-8 (Version None)
Quarter: 2012Q1

REPORT INFORMATION
  Report Type: 
  Country: None (occurrence: None)
  Receive Date: 20120106
  Receipt Date: 20120104
  Transmission Date: 20120608
  Serious: Yes (Other)
  Sender: FDA-Public Use
  Company Number: CHPA2011US018598

PATIENT
  Age: 79 Year
  Sex: Male

DRUGS (1)
  1. PREVACID 24 HR [Suspect]
     Indication: COLON CANCER STAGE IV
     Dosage: 45MG BY MOUTH, AT ONCE, EVERYDAY
     Route: 048

REACTIONS (5)
  - DUODENAL STENOSIS [None]
  - OFF LABEL USE [None]
  - OVERDOSE [None]
  - ADHESION [None]
  - INCORRECT DRUG ADMINISTRATION DURATION [None]
